FAERS Safety Report 10069435 (Version 1)
Quarter: 2014Q2

REPORT INFORMATION
  Report Type: Spontaneous
  Country: AU (occurrence: AU)
  Receive Date: 20140410
  Receipt Date: 20140410
  Transmission Date: 20141212
  Serious: Yes (Other)
  Sender: FDA-Public Use
  Company Number: AU-ROCHE-1377132

PATIENT
  Age: 57 Year
  Sex: Male

DRUGS (3)
  1. RITUXIMAB [Suspect]
     Indication: CHRONIC LYMPHOCYTIC LEUKAEMIA
     Dosage: 6 CYCLES
     Route: 065
     Dates: start: 201208, end: 201301
  2. FLUDARABINE [Suspect]
     Indication: CHRONIC LYMPHOCYTIC LEUKAEMIA
     Dosage: 6 CYCLES
     Route: 065
     Dates: start: 201208, end: 201301
  3. CYCLOPHOSPHAMIDE [Suspect]
     Indication: CHRONIC LYMPHOCYTIC LEUKAEMIA
     Dosage: 6 CYCLES
     Route: 065
     Dates: start: 201208, end: 201301

REACTIONS (7)
  - Disease progression [Unknown]
  - White blood cell count abnormal [Unknown]
  - Lymphocyte count abnormal [Unknown]
  - Abdominal lymphadenopathy [Unknown]
  - Chronic hepatitis C [Unknown]
  - Weight decreased [Unknown]
  - Fatigue [Unknown]
